FAERS Safety Report 9316812 (Version 6)
Quarter: 2017Q4

REPORT INFORMATION
  Report Type: Spontaneous
  Country: CA (occurrence: CA)
  Receive Date: 20130530
  Receipt Date: 20171003
  Transmission Date: 20180321
  Serious: Yes (Hospitalization)
  Sender: FDA-Public Use
  Company Number: CA-ROCHE-1229732

PATIENT
  Age: 16 Year
  Sex: Female
  Weight: 69 kg

DRUGS (7)
  1. XOLAIR [Suspect]
     Active Substance: OMALIZUMAB
     Indication: ASTHMA
     Route: 058
     Dates: start: 20090831
  2. XOLAIR [Suspect]
     Active Substance: OMALIZUMAB
     Route: 058
     Dates: start: 20120424
  3. SINGULAIR [Concomitant]
     Active Substance: MONTELUKAST SODIUM
  4. XOLAIR [Suspect]
     Active Substance: OMALIZUMAB
     Route: 058
     Dates: start: 20130524
  5. VENTOLIN [Concomitant]
     Active Substance: ALBUTEROL SULFATE
  6. AERIUS (CANADA) [Concomitant]
  7. ALVESCO [Concomitant]
     Active Substance: CICLESONIDE

REACTIONS (12)
  - Weight increased [Unknown]
  - Seasonal allergy [Unknown]
  - Malaise [Unknown]
  - Asthma [Unknown]
  - Fatigue [Unknown]
  - Influenza [Unknown]
  - Heart rate increased [Unknown]
  - Feeling hot [Unknown]
  - Vomiting [Unknown]
  - Pallor [Unknown]
  - Allergy to animal [Not Recovered/Not Resolved]
  - Hypoventilation [Unknown]

NARRATIVE: CASE EVENT DATE: 20090903
